FAERS Safety Report 7138255-5 (Version None)
Quarter: 2010Q4

REPORT INFORMATION
  Report Type: 
  Country: None (occurrence: None)
  Receive Date: 20101103
  Receipt Date: 20100527
  Transmission Date: 20110411
  Serious: Yes (Hospitalization, Other)
  Sender: FDA-Public Use
  Company Number: US-WYE-H15440810

PATIENT
  Age: 52 Year
  Sex: Female
  Weight: 122.58 kg

DRUGS (16)
  1. EFFEXOR XR [Suspect]
     Indication: DEPRESSION
     Dosage: 225 MG 1X PER 1 DAY ORAL
     Route: 048
     Dates: start: 19950101, end: 20080101
  2. EFFEXOR XR [Suspect]
     Indication: DEPRESSION
     Dosage: 225 MG 1X PER 1 DAY ORAL
     Route: 048
     Dates: start: 20080101
  3. WELLBUTRIN [Concomitant]
  4. CENTRUM SILVER (MULTIVITAMIN/MULTIMINERAL) [Concomitant]
  5. NASONEX [Concomitant]
  6. SIMVASTATIN [Concomitant]
  7. TEMAZEPAM [Concomitant]
  8. KLOR-CON [Concomitant]
  9. ASCORBIC ACID [Concomitant]
  10. ALLOPURINOL [Concomitant]
  11. NEURONTIN [Concomitant]
  12. ATENOLOL [Concomitant]
  13. PRILOSEC (OMEPRAZOLE) [Concomitant]
  14. FISH OIL, HYDROGENATED (FISH OIL, HYDROGENATED) [Concomitant]
  15. FERROUS SULFATE TAB [Concomitant]
  16. TOPAMAX [Concomitant]

REACTIONS (3)
  - DRUG WITHDRAWAL SYNDROME [None]
  - HEADACHE [None]
  - NERVOUSNESS [None]
